FAERS Safety Report 24746565 (Version 1)
Quarter: 2024Q4

REPORT INFORMATION
  Report Type: Spontaneous
  Country: US (occurrence: US)
  Receive Date: 20241218
  Receipt Date: 20241218
  Transmission Date: 20250115
  Serious: No
  Sender: STRIDES
  Company Number: US-STRIDES ARCOLAB LIMITED-2024SP014980

PATIENT
  Age: 38 Year
  Sex: Female

DRUGS (6)
  1. METHOTREXATE [Suspect]
     Active Substance: METHOTREXATE
     Indication: Morphoea
     Dosage: 20 MILLIGRAM, ONCE A WEEK
     Route: 058
  2. METHOTREXATE [Suspect]
     Active Substance: METHOTREXATE
     Indication: Tattoo associated skin reaction
  3. MYCOPHENOLATE MOFETIL [Suspect]
     Active Substance: MYCOPHENOLATE MOFETIL
     Indication: Morphoea
     Dosage: UNK
     Route: 065
  4. MYCOPHENOLATE MOFETIL [Suspect]
     Active Substance: MYCOPHENOLATE MOFETIL
     Indication: Tattoo associated skin reaction
  5. CLOBETASOL [Concomitant]
     Active Substance: CLOBETASOL
     Indication: Morphoea
     Dosage: UNK, BID
     Route: 061
  6. CLOBETASOL [Concomitant]
     Active Substance: CLOBETASOL
     Indication: Tattoo associated skin reaction

REACTIONS (2)
  - Abdominal discomfort [Unknown]
  - Off label use [Unknown]
